FAERS Safety Report 4629704-2 (Version None)
Quarter: 2005Q1

REPORT INFORMATION
  Report Type: 
  Country: None (occurrence: None)
  Receive Date: 20050107
  Receipt Date: 20040929
  Transmission Date: 20050727
  Serious: No
  Sender: FDA-Public Use
  Company Number: 234361K04USA

PATIENT
  Age: 33 Year
  Sex: Female

DRUGS (2)
  1. REBIF [Suspect]
     Indication: MULTIPLE SCLEROSIS
     Dosage: 44 MCG 3  IN 1 WEEKS
     Dates: start: 20040709
  2. CORTICOSTEROIDS (CORTICOSTEROIDS) [Suspect]
     Dates: start: 20040709

REACTIONS (6)
  - FAT REDISTRIBUTION [None]
  - INJECTION SITE ERYTHEMA [None]
  - INJECTION SITE INFLAMMATION [None]
  - INJECTION SITE PRURITUS [None]
  - INJECTION SITE REACTION [None]
  - OEDEMA PERIPHERAL [None]
